FAERS Safety Report 15407268 (Version 2)
Quarter: 2019Q2

REPORT INFORMATION
  Report Type: Spontaneous
  Country: US (occurrence: US)
  Receive Date: 20180920
  Receipt Date: 20190507
  Transmission Date: 20190711
  Serious: No
  Sender: FDA-Public Use
  Company Number: US-SA-2018SA261788

PATIENT
  Age: 39 Year
  Sex: Female

DRUGS (2)
  1. DUPIXENT [Suspect]
     Active Substance: DUPILUMAB
     Indication: PERIORAL DERMATITIS
  2. DUPIXENT [Suspect]
     Active Substance: DUPILUMAB
     Indication: DERMATITIS ATOPIC
     Dosage: 300 MG, QOW
     Route: 058
     Dates: start: 20170606

REACTIONS (6)
  - Dry mouth [Unknown]
  - Lip swelling [Unknown]
  - Oral discomfort [Unknown]
  - Skin discolouration [Unknown]
  - Stress [Unknown]
  - Dermatitis [Unknown]

NARRATIVE: CASE EVENT DATE: 20180907
